FAERS Safety Report 19827503 (Version 2)
Quarter: 2021Q4

REPORT INFORMATION
  Report Type: Report from Study
  Country: None (occurrence: CH)
  Receive Date: 20210914
  Receipt Date: 20211011
  Transmission Date: 20220303
  Serious: Yes (Hospitalization)
  Sender: FDA-Public Use
  Company Number: CH-ABBVIE-21K-151-4073930-00

PATIENT
  Sex: Female

DRUGS (2)
  1. CARBIDOPA\LEVODOPA [Suspect]
     Active Substance: CARBIDOPA\LEVODOPA
     Indication: Parkinson^s disease
     Dosage: MD: 3.0 ML, CRD: 2.2 ML/H, ED: 1.0 ML?16H THERAPY
     Route: 050
     Dates: start: 20210901, end: 20210902
  2. CARBIDOPA\LEVODOPA [Suspect]
     Active Substance: CARBIDOPA\LEVODOPA
     Dosage: MD: 2.0 ML, CRD (AFTERNOON): 1.8 ML/H, ED: 1.0 ML?16H THERAPY
     Route: 050
     Dates: start: 20210902

REACTIONS (3)
  - Oxygen saturation decreased [Unknown]
  - Interventional procedure [Unknown]
  - Aspiration [Unknown]
